FAERS Safety Report 6157806-0 (Version None)
Quarter: 2009Q2

REPORT INFORMATION
  Report Type: 
  Country: None (occurrence: None)
  Receive Date: 20090414
  Receipt Date: 20090316
  Transmission Date: 20091009
  Serious: Yes (Other)
  Sender: FDA-Public Use
  Company Number: FRVA20090008

PATIENT
  Age: 45 Year
  Sex: Female

DRUGS (1)
  1. MIGARD (FROVATRIPTAN) [Suspect]
     Indication: MIGRAINE
     Dosage: 2.5 MG, ONCE DAILY, ORAL
     Route: 048
     Dates: start: 20090101

REACTIONS (4)
  - ERYTHEMA NODOSUM [None]
  - MALAISE [None]
  - NASOPHARYNGITIS [None]
  - RASH [None]
